FAERS Safety Report 10807109 (Version 1)
Quarter: 2015Q1

REPORT INFORMATION
  Report Type: Report from Study
  Country: US (occurrence: US)
  Receive Date: 20150217
  Receipt Date: 20150217
  Transmission Date: 20150721
  Serious: No
  Sender: FDA-Public Use
  Company Number: US-ABBVIE-14K-163-1242072-00

PATIENT
  Age: 12 Year
  Sex: Male

DRUGS (5)
  1. HUMIRA [Suspect]
     Active Substance: ADALIMUMAB
     Dosage: WEAN OFF
  2. HUMIRA [Suspect]
     Active Substance: ADALIMUMAB
     Dates: start: 2014, end: 2014
  3. HUMIRA [Suspect]
     Active Substance: ADALIMUMAB
     Dates: start: 2014
  4. HUMIRA [Suspect]
     Active Substance: ADALIMUMAB
     Indication: ANKYLOSING SPONDYLITIS
     Dates: start: 2012, end: 201304
  5. HUMIRA [Suspect]
     Active Substance: ADALIMUMAB

REACTIONS (2)
  - Joint swelling [Not Recovered/Not Resolved]
  - Inflammation [Not Recovered/Not Resolved]

NARRATIVE: CASE EVENT DATE: 2013
